FAERS Safety Report 25480341 (Version 2)
Quarter: 2025Q3

REPORT INFORMATION
  Report Type: Spontaneous
  Country: US (occurrence: US)
  Receive Date: 20250625
  Receipt Date: 20250708
  Transmission Date: 20251021
  Serious: Yes (Hospitalization, Other)
  Sender: SANOFI AVENTIS
  Company Number: US-SANOFI-02567859

PATIENT
  Age: 81 Year
  Sex: Female

DRUGS (9)
  1. PLAVIX [Suspect]
     Active Substance: CLOPIDOGREL BISULFATE
     Indication: Thrombosis
     Dosage: 75 MG, QD
     Dates: start: 20250219, end: 20250315
  2. PLAVIX [Suspect]
     Active Substance: CLOPIDOGREL BISULFATE
     Indication: Small cell lung cancer extensive stage
  3. CARBOPLATIN [Concomitant]
     Active Substance: CARBOPLATIN
     Dates: start: 20250219, end: 20250313
  4. ETOPOSIDE [Concomitant]
     Active Substance: ETOPOSIDE
     Dates: start: 20250219
  5. NIFEDIPINE [Concomitant]
     Active Substance: NIFEDIPINE
     Dates: start: 2015
  6. CITALOPRAM [Concomitant]
     Active Substance: CITALOPRAM
     Dates: start: 202501
  7. PANTOPRAZOLE [Concomitant]
     Active Substance: PANTOPRAZOLE
  8. DICYCLOMINE [Concomitant]
     Active Substance: DICYCLOMINE HYDROCHLORIDE
     Dates: start: 20250221
  9. SERPLULIMAB [Concomitant]
     Active Substance: SERPLULIMAB

REACTIONS (3)
  - Pleural effusion [Unknown]
  - Implant site haemorrhage [Unknown]
  - Anaemia [Unknown]

NARRATIVE: CASE EVENT DATE: 20250226
